FAERS Safety Report 7048527-0 (Version None)
Quarter: 2010Q4

REPORT INFORMATION
  Report Type: 
  Country: None (occurrence: None)
  Receive Date: 20101008
  Receipt Date: 20100930
  Transmission Date: 20110411
  Serious: Yes (Other)
  Sender: FDA-Public Use
  Company Number: 2010MA003163

PATIENT
  Age: 25 Year
  Sex: Male

DRUGS (1)
  1. PROPRANOLOL HCL [Suspect]
     Dosage: 20 MG; Q8H; PO
     Route: 048

REACTIONS (8)
  - ACINETOBACTER INFECTION [None]
  - COLONIC PSEUDO-OBSTRUCTION [None]
  - FAILURE TO THRIVE [None]
  - HEART RATE DECREASED [None]
  - HYPERMETABOLISM [None]
  - PSEUDOMONAL SEPSIS [None]
  - TACHYCARDIA [None]
  - WEIGHT DECREASED [None]
